FAERS Safety Report 6781864-3 (Version None)
Quarter: 2010Q2

REPORT INFORMATION
  Report Type: 
  Country: None (occurrence: None)
  Receive Date: 20100621
  Receipt Date: 20100618
  Transmission Date: 20101027
  Serious: Yes (Death, Hospitalization, Other)
  Sender: FDA-Public Use
  Company Number: PHHY2010US20642

PATIENT
  Sex: Male

DRUGS (4)
  1. EXJADE [Suspect]
     Indication: CONGENITAL APLASTIC ANAEMIA
     Dosage: 1750 MG, QD
     Route: 048
     Dates: start: 20100115, end: 20100327
  2. EXJADE [Suspect]
     Indication: IRON OVERLOAD
  3. DAPSONE [Concomitant]
     Dosage: 25 MG DAILY
     Route: 048
     Dates: start: 20090306
  4. PREDNISONE [Concomitant]
     Dosage: 20 MG, QD
     Route: 048
     Dates: start: 20091029

REACTIONS (5)
  - INFECTION [None]
  - OEDEMA PERIPHERAL [None]
  - PNEUMONIA [None]
  - RESPIRATORY FAILURE [None]
  - WHITE BLOOD CELL COUNT INCREASED [None]
